FAERS Safety Report 12894496 (Version 6)
Quarter: 2017Q1

REPORT INFORMATION
  Report Type: Report from Study
  Country: KR (occurrence: KR)
  Receive Date: 20161028
  Receipt Date: 20170112
  Transmission Date: 20170428
  Serious: Yes (Hospitalization)
  Sender: FDA-Public Use
  Company Number: KR-ROCHE-1847946

PATIENT
  Age: 67 Year
  Sex: Male
  Weight: 66.8 kg

DRUGS (38)
  1. COZAAR [Concomitant]
     Active Substance: LOSARTAN POTASSIUM
     Indication: HYPERTENSION
     Route: 048
     Dates: start: 2010
  2. NASEA [Concomitant]
     Active Substance: RAMOSETRON HYDROCHLORIDE
     Route: 042
     Dates: start: 20161013, end: 20161013
  3. EBASTEL [Concomitant]
     Active Substance: EBASTINE
     Indication: UPPER RESPIRATORY TRACT INFECTION
     Route: 048
     Dates: start: 20161025, end: 20161102
  4. NEXIUM [Concomitant]
     Active Substance: ESOMEPRAZOLE MAGNESIUM
     Route: 042
     Dates: start: 20161026, end: 20161028
  5. LIPITOR [Concomitant]
     Active Substance: ATORVASTATIN CALCIUM
     Indication: HYPERTENSION
     Route: 048
     Dates: start: 2010
  6. MACPERAN [Concomitant]
     Active Substance: METOCLOPRAMIDE HYDROCHLORIDE
     Indication: HICCUPS
     Route: 048
     Dates: start: 20161025, end: 20161025
  7. NASEA [Concomitant]
     Active Substance: RAMOSETRON HYDROCHLORIDE
     Route: 042
     Dates: start: 20161206, end: 20161206
  8. ATEZOLIZUMAB [Suspect]
     Active Substance: ATEZOLIZUMAB
     Indication: PANCREATIC CARCINOMA
     Dosage: DOSE OF LAST STUDY DRUG ADMINISTERED: 840 MG ?DATE OF MOST RECENT DOSE: 20/OCT/2016
     Route: 042
     Dates: start: 20160804
  9. CYMBALTA [Concomitant]
     Active Substance: DULOXETINE HYDROCHLORIDE
     Indication: NEUROPATHY PERIPHERAL
     Route: 048
     Dates: start: 20160906, end: 20161005
  10. MEGACE [Concomitant]
     Active Substance: MEGESTROL ACETATE
     Indication: DECREASED APPETITE
     Route: 048
     Dates: start: 20161004
  11. DIFLUCAN [Concomitant]
     Active Substance: FLUCONAZOLE
     Route: 042
     Dates: start: 20161028, end: 20161028
  12. CIPROBAY [Concomitant]
     Active Substance: CIPROFLOXACIN
     Indication: OESOPHAGEAL CANDIDIASIS
     Route: 048
     Dates: start: 20161028, end: 20161104
  13. BACLAN (SOUTH KOREA) [Concomitant]
     Indication: HICCUPS
     Route: 048
     Dates: start: 20160925, end: 20161103
  14. MACPERAN [Concomitant]
     Active Substance: METOCLOPRAMIDE HYDROCHLORIDE
     Route: 042
     Dates: start: 20161026, end: 20161102
  15. DIFLUCAN [Concomitant]
     Active Substance: FLUCONAZOLE
     Indication: OESOPHAGEAL CANDIDIASIS
     Route: 042
     Dates: start: 20161027, end: 20161027
  16. LANSTON [Concomitant]
     Active Substance: LANSOPRAZOLE
     Indication: PROPHYLAXIS
     Route: 048
     Dates: start: 20161028, end: 20161103
  17. NORZYME [Concomitant]
     Route: 048
     Dates: start: 20160626
  18. NASEA [Concomitant]
     Active Substance: RAMOSETRON HYDROCHLORIDE
     Indication: VOMITING
     Route: 042
     Dates: start: 20161004, end: 20161004
  19. NASEA [Concomitant]
     Active Substance: RAMOSETRON HYDROCHLORIDE
     Route: 042
     Dates: start: 20161020, end: 20161020
  20. DIFLUCAN [Concomitant]
     Active Substance: FLUCONAZOLE
     Route: 048
     Dates: start: 20161028, end: 20161109
  21. NAB-PACLITAXEL [Suspect]
     Active Substance: PACLITAXEL
     Indication: PANCREATIC CARCINOMA
     Dosage: DOSE OF LAST STUDY DRUG ADMINISTERED: 75 MG/M2 ?DATE OF MOST RECENT DOSE: 20/OCT/2016
     Route: 042
     Dates: start: 20160804
  22. GEMCITABINE [Suspect]
     Active Substance: GEMCITABINE\GEMCITABINE HYDROCHLORIDE
     Indication: PANCREATIC CARCINOMA
     Dosage: DOSE OF LAST STUDY DRUG ADMINISTERED: 600 MG/M2 ?DATE OF MOST RECENT DOSE: 20/OCT/2016
     Route: 042
     Dates: start: 20160804
  23. AMARYL [Concomitant]
     Active Substance: GLIMEPIRIDE
     Indication: DIABETES MELLITUS
     Route: 048
     Dates: start: 2010
  24. CYMBALTA [Concomitant]
     Active Substance: DULOXETINE HYDROCHLORIDE
     Route: 048
     Dates: start: 20161115
  25. NASEA [Concomitant]
     Active Substance: RAMOSETRON HYDROCHLORIDE
     Route: 042
     Dates: start: 20161108, end: 20161108
  26. URSA [Concomitant]
     Indication: PROPHYLAXIS
     Route: 048
     Dates: start: 20161004
  27. PENIRAMIN [Concomitant]
     Indication: UPPER RESPIRATORY TRACT INFECTION
     Route: 042
     Dates: start: 20161026, end: 20161028
  28. ULCERLMIN [Concomitant]
     Active Substance: SUCRALFATE
     Indication: PROPHYLAXIS
     Route: 048
     Dates: start: 20161026, end: 20161104
  29. DENOGAN [Concomitant]
     Active Substance: PROPACETAMOL HYDROCHLORIDE
     Indication: UPPER RESPIRATORY TRACT INFECTION
     Route: 042
     Dates: start: 20161026, end: 20161026
  30. AMOKLAN DUO [Concomitant]
     Route: 048
     Dates: start: 20161028, end: 20161104
  31. NEXIUM [Concomitant]
     Active Substance: ESOMEPRAZOLE MAGNESIUM
     Route: 048
     Dates: start: 20160720
  32. DIABEX [Concomitant]
     Active Substance: METFORMIN HYDROCHLORIDE
     Indication: DIABETES MELLITUS
     Route: 048
     Dates: start: 2010
  33. NASEA [Concomitant]
     Active Substance: RAMOSETRON HYDROCHLORIDE
     Route: 042
     Dates: start: 20161130, end: 20161130
  34. LEGALON [Concomitant]
     Active Substance: MILK THISTLE
     Indication: PROPHYLAXIS
     Route: 048
     Dates: start: 20161004
  35. GASMOTIN [Concomitant]
     Active Substance: MOSAPRIDE CITRATE
     Indication: PROPHYLAXIS
     Route: 048
     Dates: start: 20160829
  36. BACLAN (SOUTH KOREA) [Concomitant]
     Route: 048
     Dates: start: 20161104
  37. CODEINE [Concomitant]
     Active Substance: CODEINE
     Indication: UPPER RESPIRATORY TRACT INFECTION
     Route: 048
     Dates: start: 20161025, end: 20161102
  38. MAXIPIME [Concomitant]
     Active Substance: CEFEPIME HYDROCHLORIDE
     Indication: UPPER RESPIRATORY TRACT INFECTION
     Route: 042
     Dates: start: 20161026, end: 20161028

REACTIONS (1)
  - Dysphagia [Not Recovered/Not Resolved]

NARRATIVE: CASE EVENT DATE: 20161026
